FAERS Safety Report 5200992-7 (Version None)
Quarter: 2007Q1

REPORT INFORMATION
  Report Type: 
  Country: None (occurrence: None)
  Receive Date: 20070108
  Receipt Date: 20070105
  Transmission Date: 20070707
  Serious: Yes (Life-Threatening, Disabling, Other)
  Sender: FDA-Public Use
  Company Number: US-GLAXOSMITHKLINE-A0634505A

PATIENT
  Age: 36 Year
  Sex: Female

DRUGS (1)
  1. ACYCLOVIR [Suspect]
     Dosage: 1600MG THREE TIMES PER DAY
     Route: 048
     Dates: start: 20061215

REACTIONS (3)
  - CD4 LYMPHOCYTES DECREASED [None]
  - DRUG INEFFECTIVE [None]
  - SQUAMOUS CELL CARCINOMA [None]
